FAERS Safety Report 9864046 (Version 3)
Quarter: 2014Q2

REPORT INFORMATION
  Report Type: Spontaneous
  Country: JP (occurrence: JP)
  Receive Date: 20140203
  Receipt Date: 20140415
  Transmission Date: 20141212
  Serious: Yes (Hospitalization)
  Sender: FDA-Public Use
  Company Number: PHJP2014JP000495

PATIENT
  Sex: Male

DRUGS (1)
  1. TEGRETOL TAB 200MG [Suspect]
     Indication: EPILEPSY
     Dosage: 100 MG, DAILY
     Route: 048

REACTIONS (1)
  - Gastric cancer [Unknown]
